FAERS Safety Report 11322074 (Version 2)
Quarter: 2015Q3

REPORT INFORMATION
  Report Type: Report from Study
  Country: US (occurrence: US)
  Receive Date: 20150729
  Receipt Date: 20150820
  Transmission Date: 20151125
  Serious: Yes (Hospitalization)
  Sender: FDA-Public Use
  Company Number: US-ACTELION-A-NJ2015-121500

PATIENT
  Age: 66 Year
  Sex: Female

DRUGS (3)
  1. SOTALOL. [Concomitant]
     Active Substance: SOTALOL
  2. TRACLEER [Suspect]
     Active Substance: BOSENTAN
     Indication: PULMONARY ARTERIAL HYPERTENSION
     Dosage: UNK
     Route: 048
  3. COUMADINE [Concomitant]
     Active Substance: WARFARIN SODIUM

REACTIONS (5)
  - Back pain [Unknown]
  - Pain [Unknown]
  - Asthenia [Unknown]
  - Atrial fibrillation [Unknown]
  - Malaise [Unknown]
